FAERS Safety Report 5982907-7 (Version None)
Quarter: 2008Q4

REPORT INFORMATION
  Report Type: 
  Country: None (occurrence: None)
  Receive Date: 20081205
  Receipt Date: 20081205
  Transmission Date: 20090506
  Serious: Yes (Death)
  Sender: FDA-Public Use
  Company Number: None

PATIENT
  Age: 75 Year
  Sex: Female
  Weight: 139 kg

DRUGS (19)
  1. ATROVENT [Suspect]
     Indication: POSTNASAL DRIP
     Dosage: 2 SPRAYS TID NASAL
     Route: 045
     Dates: start: 20080917, end: 20080917
  2. XENADERM [Concomitant]
  3. NYSTATIN [Concomitant]
  4. M.V.I. [Concomitant]
  5. OSCAL [Concomitant]
  6. PROTONIX [Concomitant]
  7. POTASSIUM CHLORIDE [Concomitant]
  8. DIAMOX [Concomitant]
  9. XALATAN [Concomitant]
  10. FOLATE [Concomitant]
  11. MIRALAX [Concomitant]
  12. RITUXIMAB [Concomitant]
  13. PREDNISOLONE ACETATE [Concomitant]
  14. SOLU-MEDROL [Concomitant]
  15. NORVASC [Concomitant]
  16. MYCELEX [Concomitant]
  17. FLAGYL [Concomitant]
  18. VALTREX [Concomitant]
  19. HUMULIN [Concomitant]

REACTIONS (10)
  - ANGIOEDEMA [None]
  - ATRIAL FIBRILLATION [None]
  - CARDIAC ARREST [None]
  - DYSPNOEA [None]
  - ELECTROMECHANICAL DISSOCIATION [None]
  - HAEMOLYTIC ANAEMIA [None]
  - LARYNGOSPASM [None]
  - PHARYNGEAL OEDEMA [None]
  - SKIN WARM [None]
  - THROMBOTIC THROMBOCYTOPENIC PURPURA [None]
